FAERS Safety Report 13277355 (Version 2)
Quarter: 2017Q1

REPORT INFORMATION
  Report Type: Spontaneous
  Country: JP (occurrence: JP)
  Receive Date: 20170228
  Receipt Date: 20170308
  Transmission Date: 20170428
  Serious: Yes (Death, Hospitalization, Other)
  Sender: FDA-Public Use
  Company Number: JP-PFIZER INC-2017047184

PATIENT
  Age: 86 Year
  Sex: Female
  Weight: 33.7 kg

DRUGS (5)
  1. RHEUMATREX [Suspect]
     Active Substance: METHOTREXATE SODIUM
     Dosage: 6 MG, WEEKLY
     Route: 048
     Dates: start: 20150205, end: 20170201
  2. PREDONINE [Concomitant]
     Active Substance: PREDNISOLONE
     Indication: RHEUMATOID ARTHRITIS
     Dosage: 5 MG, 2X/DAY
     Route: 048
     Dates: start: 20130605, end: 20140304
  3. RIMATIL [Suspect]
     Active Substance: BUCILLAMINE
     Indication: RHEUMATOID ARTHRITIS
     Dosage: 100 MG, 2X/DAY
     Route: 048
     Dates: start: 20130605, end: 201702
  4. PREDONINE [Concomitant]
     Active Substance: PREDNISOLONE
     Dosage: 7.5 MG, DAILY
     Route: 048
     Dates: start: 20140305, end: 201702
  5. RHEUMATREX [Suspect]
     Active Substance: METHOTREXATE SODIUM
     Indication: RHEUMATOID ARTHRITIS
     Dosage: 4 MG, WEEKLY
     Route: 048
     Dates: start: 20131106, end: 201501

REACTIONS (9)
  - Red blood cell count decreased [Recovering/Resolving]
  - Melaena [Unknown]
  - White blood cell count decreased [Recovering/Resolving]
  - Sepsis [Fatal]
  - Decreased appetite [Unknown]
  - Abdominal pain [Unknown]
  - Platelet count decreased [Recovering/Resolving]
  - Cholecystitis [Fatal]
  - Pneumonia [Unknown]

NARRATIVE: CASE EVENT DATE: 201701
